FAERS Safety Report 7994477-2 (Version None)
Quarter: 2011Q4

REPORT INFORMATION
  Report Type: 
  Country: None (occurrence: None)
  Receive Date: 20111123
  Receipt Date: 20111011
  Transmission Date: 20120403
  Serious: No
  Sender: FDA-Public Use
  Company Number: 337103

PATIENT
  Age: 56 Year
  Sex: Female

DRUGS (2)
  1. OGLYZA (SAXAGLIPTIN HYDROCHLORIDE) [Suspect]
     Indication: TYPE 2 DIABETES MELLITUS
     Dosage: 5;1.2MG, QD, ORAL
     Route: 048
  2. VICTOZA [Suspect]
     Indication: TYPE 2 DIABETES MELLITUS
     Dosage: 1.9 MG, QD, SUBCUTANEOUS
     Route: 058

REACTIONS (3)
  - ABDOMINAL DISCOMFORT [None]
  - FLATULENCE [None]
  - ERUCTATION [None]
